FAERS Safety Report 9880850 (Version 1)
Quarter: 2014Q1

REPORT INFORMATION
  Report Type: Spontaneous
  Country: GB (occurrence: None)
  Receive Date: 20140205
  Receipt Date: 20140205
  Transmission Date: 20141002
  Serious: Yes (Hospitalization)
  Sender: FDA-Public Use
  Company Number: 2155330

PATIENT
  Age: 61 Year
  Sex: Female
  Weight: 82.55 kg

DRUGS (3)
  1. DOCETAXEL [Suspect]
     Indication: BREAST CANCER
     Route: 051
     Dates: start: 20110201, end: 20110427
  2. ANASTROZOLE [Concomitant]
  3. FLUTICASONE PROPIONATE W/SALMETEROL XINAFOATE [Concomitant]

REACTIONS (4)
  - Abscess [None]
  - Onychomadesis [None]
  - Dysstasia [None]
  - Infection [None]
